FAERS Safety Report 8799715 (Version 1)
Quarter: 2012Q4

REPORT INFORMATION
  Report Type: Spontaneous
  Country: DK (occurrence: None)
  Receive Date: 20120914
  Receipt Date: 20120914
  Transmission Date: 20130627
  Serious: Yes (Hospitalization)
  Sender: FDA-Public Use
  Company Number: 2012MA011012

PATIENT
  Age: 62 Year
  Sex: Male

DRUGS (12)
  1. INDAPAMIDE [Suspect]
  2. AMLODIPINE [Concomitant]
  3. FLUTICASONE [Concomitant]
  4. METFORMIN [Concomitant]
  5. OMEPRAZOLE [Concomitant]
  6. PRAVASTATIN [Concomitant]
  7. SITAGLIPTIN [Concomitant]
  8. FLUCLOXACILLIN [Concomitant]
  9. LOCERYL [Concomitant]
  10. RANITIDINE [Concomitant]
  11. CHLORPHENAMINE [Concomitant]
  12. HYDROCORTISONE [Concomitant]

REACTIONS (2)
  - Drug reaction with eosinophilia and systemic symptoms [None]
  - Drug hypersensitivity [None]
